FAERS Safety Report 26111930 (Version 2)
Quarter: 2025Q4

REPORT INFORMATION
  Report Type: Spontaneous
  Country: EU (occurrence: EU)
  Receive Date: 20251202
  Receipt Date: 20251205
  Transmission Date: 20260117
  Serious: Yes (Other)
  Sender: MYLAN
  Company Number: EU-EQL-2025000229

PATIENT
  Sex: Female

DRUGS (1)
  1. METFORMIN [Suspect]
     Active Substance: METFORMIN HYDROCHLORIDE
     Indication: Diabetes mellitus
     Dosage: 200 MILLIGRAM, QD, DAILY DOSE: 2000 MG

REACTIONS (3)
  - Renal failure [Unknown]
  - Diabetic ketoacidosis [Unknown]
  - Lactic acidosis [Unknown]
